FAERS Safety Report 8933512 (Version 1)
Quarter: 2012Q4

REPORT INFORMATION
  Report Type: 
  Country: US (occurrence: US)
  Receive Date: 20121128
  Receipt Date: 20121128
  Transmission Date: 20130627
  Serious: No
  Sender: FDA-Public Use
  Company Number: US-ABBOTT-12P-163-0999792-00

PATIENT
  Sex: Female

DRUGS (1)
  1. ANDROGEL [Suspect]
     Indication: EXPOSURE VIA SEMEN

REACTIONS (4)
  - Vulvovaginal burning sensation [Recovered/Resolved]
  - Accidental exposure to product [Recovered/Resolved]
  - Vulvovaginal burning sensation [Recovered/Resolved]
  - Accidental exposure to product [Recovered/Resolved]
